FAERS Safety Report 25408430 (Version 3)
Quarter: 2025Q3

REPORT INFORMATION
  Report Type: Spontaneous
  Country: US (occurrence: US)
  Receive Date: 20250606
  Receipt Date: 20250905
  Transmission Date: 20251020
  Serious: Yes (Other)
  Sender: BIOMARIN
  Company Number: US-SA-2025SA157703

PATIENT
  Age: 1 Year
  Sex: Male

DRUGS (3)
  1. LARONIDASE [Suspect]
     Active Substance: LARONIDASE
     Indication: Mucopolysaccharidosis I
     Dosage: 5.8 (UNITS UNSPECIFIED), QW
     Dates: start: 201605
  2. LARONIDASE [Suspect]
     Active Substance: LARONIDASE
     Dosage: 20.3 (UNITS UNSPECIFIED), QW
  3. LARONIDASE [Suspect]
     Active Substance: LARONIDASE

REACTIONS (2)
  - Graft versus host disease in skin [Not Recovered/Not Resolved]
  - Urinary glycosaminoglycans increased [Not Recovered/Not Resolved]

NARRATIVE: CASE EVENT DATE: 20160801
